FAERS Safety Report 5005634-1 (Version None)
Quarter: 2006Q2

REPORT INFORMATION
  Report Type: 
  Country: None (occurrence: None)
  Receive Date: 20060517
  Receipt Date: 20060517
  Transmission Date: 20061013
  Serious: Yes (Hospitalization)
  Sender: FDA-Public Use
  Company Number: None

PATIENT
  Age: 58 Year
  Sex: Male
  Weight: 79.3795 kg

DRUGS (3)
  1. LISINOPRIL [Suspect]
     Indication: HYPERTENSION
     Dosage: 2.5MG  QD  PO
     Route: 048
     Dates: start: 20051111, end: 20060326
  2. LISINOPRIL [Suspect]
     Indication: PROPHYLAXIS
     Dosage: 2.5MG  QD  PO
     Route: 048
     Dates: start: 20051111, end: 20060326
  3. LISINOPRIL [Suspect]
     Indication: RENAL DISORDER
     Dosage: 2.5MG  QD  PO
     Route: 048
     Dates: start: 20051111, end: 20060326

REACTIONS (2)
  - SWELLING FACE [None]
  - SWOLLEN TONGUE [None]
